FAERS Safety Report 9701248 (Version 1)
Quarter: 2013Q4

REPORT INFORMATION
  Report Type: Spontaneous
  Country: US (occurrence: None)
  Receive Date: 20131120
  Receipt Date: 20131120
  Transmission Date: 20140711
  Serious: No
  Sender: FDA-Public Use
  Company Number: None

PATIENT
  Age: 57 Year
  Sex: Female
  Weight: 98.6 kg

DRUGS (3)
  1. 5-FLUOROURACIL [Suspect]
     Dosage: 5016 MG CONTINOUS INFUSION OVER 46 HOURS
     Dates: start: 20130916
  2. LEUCOVORIN CALCIUM [Suspect]
     Dates: start: 20130916
  3. OXALIPLATIN [Suspect]
     Dates: start: 20130916

REACTIONS (5)
  - Diarrhoea [None]
  - Septic shock [None]
  - Renal failure acute [None]
  - Clostridium difficile colitis [None]
  - Disease recurrence [None]
